FAERS Safety Report 5060488-2 (Version None)
Quarter: 2006Q2

REPORT INFORMATION
  Report Type: 
  Country: None (occurrence: None)
  Receive Date: 20060630
  Receipt Date: 20051031
  Transmission Date: 20061013
  Serious: Yes (Death, Life-Threatening, Hospitalization)
  Sender: FDA-Public Use
  Company Number: VISP-PR-0509S-0484

PATIENT
  Age: 77 Year
  Sex: Male

DRUGS (1)
  1. VISIPAQUE [Suspect]
     Indication: AORTIC ANEURYSM
     Dosage: 150 ML, SINGLE DOSE, I.V.
     Route: 042
     Dates: start: 20050926, end: 20050926

REACTIONS (2)
  - ANAPHYLACTOID REACTION [None]
  - MYOCARDIAL INFARCTION [None]
